FAERS Safety Report 5573834-8 (Version None)
Quarter: 2007Q4

REPORT INFORMATION
  Report Type: 
  Country: None (occurrence: None)
  Receive Date: 20071226
  Receipt Date: 20071214
  Transmission Date: 20080405
  Serious: Yes (Other)
  Sender: FDA-Public Use
  Company Number: JP-PFIZER INC-2007106429

PATIENT
  Age: 80 Year
  Sex: Female

DRUGS (2)
  1. CELECOX [Suspect]
     Indication: OSTEOARTHRITIS
     Dosage: DAILY DOSE:200MG
     Route: 048
     Dates: start: 20071129, end: 20071130
  2. RISEDRONATE SODIUM HYDRATE [Concomitant]
     Dosage: DAILY DOSE:2.5MG
     Route: 048

REACTIONS (3)
  - CHILLS [None]
  - COMA [None]
  - SPEECH DISORDER [None]
